FAERS Safety Report 7237304 (Version 2)
Quarter: 2013Q4

REPORT INFORMATION
  Report Type: Spontaneous
  Country: US (occurrence: None)
  Receive Date: 20091217
  Receipt Date: 20131227
  Transmission Date: 20140711
  Serious: Yes (Other)
  Sender: FDA-Public Use
  Company Number: 2009S1008737

PATIENT
  Age: 66 Year
  Sex: Male
  Weight: 102.06 kg

DRUGS (8)
  1. FLEET PHOSPHO-SODA [Suspect]
     Dosage: ; PO
     Route: 048
     Dates: start: 20071008
  2. AUGMENTIN (AMOXICILLIN SODIUM, CLAVULANATE POTASSIUM) (875 MILLIGRAM) [Concomitant]
  3. SECTRAL (ACEBUTOLOL HYDROCHLORIDE) [Concomitant]
  4. PAXIL (PAROXETINE HYDROCHLORIDE) [Concomitant]
  5. NEXIUM (ESOMEPRAZOLE MAGNESIUM) [Concomitant]
  6. LISINOPRIL (LISINOPRIL) [Concomitant]
  7. IBUPROFEN (IBUPROFEN) [Concomitant]
  8. LIPITOR (ATORVASTATIN CALCIUM) (20 MILLIGRAM) [Concomitant]

REACTIONS (4)
  - Renal failure acute [None]
  - Renal failure chronic [None]
  - Dysgeusia [None]
  - Asthenia [None]
